FAERS Safety Report 11692197 (Version 12)
Quarter: 2019Q2

REPORT INFORMATION
  Report Type: Spontaneous
  Country: US (occurrence: US)
  Receive Date: 20151103
  Receipt Date: 20190410
  Transmission Date: 20190711
  Serious: Yes (Hospitalization, Other)
  Sender: FDA-Public Use
  Company Number: US-ASTRAZENECA-2015SF03330

PATIENT
  Age: 54 Year
  Sex: Female
  Weight: 86.2 kg

DRUGS (41)
  1. TUDORZA PRESSAIR [Suspect]
     Active Substance: ACLIDINIUM BROMIDE
     Indication: CHRONIC OBSTRUCTIVE PULMONARY DISEASE
     Dosage: 400 MCG, ONE PUFF TWICE DAILY
     Route: 055
     Dates: start: 20151020
  2. OMEPRAZOLE. [Suspect]
     Active Substance: OMEPRAZOLE
     Indication: HIATUS HERNIA
     Route: 048
  3. ALBUTEROL. [Suspect]
     Active Substance: ALBUTEROL
     Route: 065
  4. SIMVASTATIN. [Concomitant]
     Active Substance: SIMVASTATIN
     Indication: BLOOD CHOLESTEROL INCREASED
     Dosage: DAILY
  5. LOSARTAN. [Concomitant]
     Active Substance: LOSARTAN
     Indication: HYPERTENSION
  6. KLONIPIN [Concomitant]
     Active Substance: CLONAZEPAM
     Indication: PAIN
  7. BUDESONIDE. [Suspect]
     Active Substance: BUDESONIDE
     Indication: EMPHYSEMA
     Dosage: TWO TIMES A DAY
     Route: 055
  8. LINZESS [Suspect]
     Active Substance: LINACLOTIDE
     Route: 065
  9. ZINC. [Concomitant]
     Active Substance: ZINC
     Indication: GLOSSITIS
  10. CORTICOSTEROID NOS [Concomitant]
     Active Substance: CORTICOSTEROID NOS
  11. PROLIA [Concomitant]
     Active Substance: DENOSUMAB
     Indication: OSTEOARTHRITIS
  12. CALCIUM [Concomitant]
     Active Substance: CALCIUM
     Indication: OSTEOPOROSIS
  13. FENTANYL. [Concomitant]
     Active Substance: FENTANYL
     Indication: PAIN
  14. REFRESH PLUS [Concomitant]
     Active Substance: CARBOXYMETHYLCELLULOSE SODIUM
     Indication: EYE LUBRICATION THERAPY
     Dosage: FOUR TIMES A DAY
  15. ASPIRIN. [Concomitant]
     Active Substance: ASPIRIN
     Indication: ILL-DEFINED DISORDER
  16. GLUCERNA DRINK [Concomitant]
     Indication: DIABETES MELLITUS
     Dosage: THREE TIMES A DAY
  17. VITAMIN D2 [Concomitant]
     Active Substance: ERGOCALCIFEROL
     Indication: OSTEOPOROSIS
     Dosage: 2000
  18. IRON [Concomitant]
     Active Substance: IRON
     Indication: ANAEMIA
  19. CHLORTHALIDONE. [Concomitant]
     Active Substance: CHLORTHALIDONE
     Indication: BLOOD PRESSURE ABNORMAL
  20. ONDANSETRON [Concomitant]
     Active Substance: ONDANSETRON
     Indication: VOMITING
  21. ZIOPTAN [Concomitant]
     Active Substance: TAFLUPROST
     Indication: GLAUCOMA
     Dosage: AT NIGHT
  22. CHLORTHALIDONE. [Concomitant]
     Active Substance: CHLORTHALIDONE
     Indication: DIURETIC THERAPY
  23. MULTIVITAMIN [Concomitant]
     Active Substance: VITAMINS
  24. TUDORZA PRESSAIR [Suspect]
     Active Substance: ACLIDINIUM BROMIDE
     Indication: OBSTRUCTIVE AIRWAYS DISORDER
     Dosage: 400 MCG, ONE PUFF TWICE DAILY
     Route: 055
     Dates: start: 20151020
  25. TUDORZA PRESSAIR [Suspect]
     Active Substance: ACLIDINIUM BROMIDE
     Indication: EMPHYSEMA
     Dosage: 400 MCG, ONE PUFF TWICE DAILY
     Route: 055
     Dates: start: 20151020
  26. TUDORZA PRESSAIR [Suspect]
     Active Substance: ACLIDINIUM BROMIDE
     Indication: LUNG DISORDER
     Dosage: 400 MCG, ONE PUFF TWICE DAILY
     Route: 055
     Dates: start: 20151020
  27. MOVANTIK [Suspect]
     Active Substance: NALOXEGOL OXALATE
     Indication: CONSTIPATION
     Route: 048
  28. KLONIPIN [Concomitant]
     Active Substance: CLONAZEPAM
     Indication: FEELING OF RELAXATION
  29. KLONIPIN [Concomitant]
     Active Substance: CLONAZEPAM
     Indication: NERVOUS SYSTEM DISORDER
  30. SYNTHROID [Concomitant]
     Active Substance: LEVOTHYROXINE SODIUM
     Indication: THYROID DISORDER
     Dosage: TAKES 50 MCG ONE DAY AND 75 MCG THE NEXT
  31. SENNA [Concomitant]
     Active Substance: SENNA LEAF\SENNOSIDES\SENNOSIDES A AND B
  32. TIGAN [Concomitant]
     Active Substance: TRIMETHOBENZAMIDE HYDROCHLORIDE
     Indication: NAUSEA
  33. COLACE [Concomitant]
     Active Substance: DOCUSATE SODIUM
  34. ALIGN [Concomitant]
     Active Substance: BIFIDOBACTERIUM LONGUM SUBSP. INFANTIS
     Indication: PROBIOTIC THERAPY
     Dosage: DAILY
  35. PHAZYME [Concomitant]
     Active Substance: DIMETHICONE 410
  36. BOTOX [Concomitant]
     Active Substance: ONABOTULINUMTOXINA
  37. RELISTOR [Concomitant]
     Active Substance: METHYLNALTREXONE BROMIDE
  38. LUVOX [Concomitant]
     Active Substance: FLUVOXAMINE MALEATE
     Indication: NEURALGIA
  39. REFRESH PLUS [Concomitant]
     Active Substance: CARBOXYMETHYLCELLULOSE SODIUM
     Indication: LACRIMATION INCREASED
     Dosage: FOUR TIMES A DAY
  40. CENTRUM WOMENS [Concomitant]
     Indication: HYPOVITAMINOSIS
     Dosage: DAILY
  41. CLOTRIMAZOLE. [Concomitant]
     Active Substance: CLOTRIMAZOLE
     Indication: CANDIDA INFECTION

REACTIONS (61)
  - Seizure [Unknown]
  - Tongue injury [Unknown]
  - Back injury [Unknown]
  - Dyspnoea [Unknown]
  - Constipation [Unknown]
  - Insomnia [Unknown]
  - Neck pain [Unknown]
  - Back pain [Not Recovered/Not Resolved]
  - Lung disorder [Unknown]
  - Ovarian cancer [Unknown]
  - Spinal fracture [Unknown]
  - Gastric disorder [Unknown]
  - Intestinal haemorrhage [Unknown]
  - Body height decreased [Not Recovered/Not Resolved]
  - Feeding disorder [Unknown]
  - Neuralgia [Unknown]
  - Anxiety [Unknown]
  - Candida infection [Recovered/Resolved]
  - Oral candidiasis [Recovered/Resolved]
  - Off label use [Unknown]
  - Cardiac disorder [Unknown]
  - Vomiting [Unknown]
  - Malaise [Unknown]
  - Arthropathy [Unknown]
  - Throat lesion [Unknown]
  - Paralysis [Unknown]
  - Gastrointestinal disorder [Unknown]
  - Pain [Unknown]
  - Hernia [Not Recovered/Not Resolved]
  - Osteoporosis [Unknown]
  - Injury associated with device [Unknown]
  - Angina pectoris [Unknown]
  - Burning sensation [Unknown]
  - Product taste abnormal [Unknown]
  - Intentional device misuse [Unknown]
  - Neck injury [Unknown]
  - Arterial haemorrhage [Unknown]
  - Nervousness [Unknown]
  - Tongue discomfort [Unknown]
  - Incorrect dose administered [Unknown]
  - Device issue [Unknown]
  - Asthenia [Unknown]
  - Fungal infection [Unknown]
  - Spinal cord injury cervical [Unknown]
  - Temperature intolerance [Unknown]
  - Drug ineffective [Unknown]
  - Accident at home [Unknown]
  - Urinary bladder rupture [Unknown]
  - Oesophageal disorder [Unknown]
  - Malnutrition [Unknown]
  - Peripheral venous disease [Unknown]
  - Syncope [Unknown]
  - Dry mouth [Unknown]
  - Nausea [Unknown]
  - Device difficult to use [Unknown]
  - Intentional product misuse [Unknown]
  - Product use in unapproved indication [Unknown]
  - Emphysema [Unknown]
  - Agitation [Unknown]
  - Fatigue [Unknown]
  - Circumstance or information capable of leading to medication error [Unknown]

NARRATIVE: CASE EVENT DATE: 1998
